FAERS Safety Report 23671601 (Version 1)
Quarter: 2024Q1

REPORT INFORMATION
  Report Type: Report from Study
  Country: JP (occurrence: JP)
  Receive Date: 20240326
  Receipt Date: 20240326
  Transmission Date: 20240410
  Serious: Yes (Death, Hospitalization)
  Sender: FDA-Public Use
  Company Number: JP-NBI-BJ202405383

PATIENT
  Age: 68 Year
  Sex: Male
  Weight: 48 kg

DRUGS (2)
  1. OFEV [Suspect]
     Active Substance: NINTEDANIB
     Indication: Idiopathic interstitial pneumonia
     Dosage: DAILY DOSE: 300.0 MILLIGRAM(S)
     Route: 048
     Dates: start: 20180122, end: 20190409
  2. OFEV [Suspect]
     Active Substance: NINTEDANIB
     Dosage: DAILY DOSE: 200.0 MILLIGRAM(S)
     Route: 048
     Dates: start: 20190410, end: 20200511

REACTIONS (1)
  - Pneumothorax spontaneous [Fatal]

NARRATIVE: CASE EVENT DATE: 20200512
